FAERS Safety Report 10947925 (Version 1)
Quarter: 2015Q1

REPORT INFORMATION
  Report Type: Spontaneous
  Country: US (occurrence: US)
  Receive Date: 20150324
  Receipt Date: 20150324
  Transmission Date: 20150721
  Serious: No
  Sender: FDA-Public Use
  Company Number: US-BRISTOL-MYERS SQUIBB COMPANY-BMS-2015-017077

PATIENT
  Age: 50 Year
  Sex: Female

DRUGS (2)
  1. SPRYCEL [Suspect]
     Active Substance: DASATINIB
     Indication: CHRONIC MYELOID LEUKAEMIA
     Dosage: 70 MG, QD
     Route: 048
  2. SPRYCEL [Suspect]
     Active Substance: DASATINIB
     Dosage: 50 MG, BID
     Route: 048

REACTIONS (2)
  - Flatulence [Recovering/Resolving]
  - Adverse event [Unknown]

NARRATIVE: CASE EVENT DATE: 20150316
